FAERS Safety Report 19615388 (Version 1)
Quarter: 2021Q3

REPORT INFORMATION
  Report Type: Report from Study
  Country: ES (occurrence: ES)
  Receive Date: 20210727
  Receipt Date: 20210727
  Transmission Date: 20211014
  Serious: Yes (Hospitalization)
  Sender: FDA-Public Use
  Company Number: ES-PFIZER INC-2021778720

PATIENT
  Age: 77 Year
  Sex: Male
  Weight: 71 kg

DRUGS (11)
  1. FLUOROURACIL. [Suspect]
     Active Substance: FLUOROURACIL
     Dosage: 3780 MG, CYCLIC (FREQ:2 WK;3780 MG, QOW)
     Route: 042
     Dates: start: 20210519, end: 20210519
  2. AFLIBERCEPT [Suspect]
     Active Substance: AFLIBERCEPT
     Indication: COLON CANCER
     Dosage: 300 MG, CYCLIC (FREQ:2 WK;300 MG, QOW)
     Route: 042
     Dates: start: 20210505, end: 20210505
  3. IRINOTECAN HCL [Suspect]
     Active Substance: IRINOTECAN HYDROCHLORIDE
     Indication: COLON CANCER
     Dosage: 28315 MG, CYCLIC (FREQ:2 WK;28315 MG, QOW)
     Route: 042
     Dates: start: 20210505, end: 20210505
  4. FLUOROURACIL. [Suspect]
     Active Substance: FLUOROURACIL
     Indication: COLON CANCER
     Dosage: 3780 MG, CYCLIC (FREQ:2 WK;3780 MG, QOW)
     Route: 042
     Dates: start: 20210505, end: 20210505
  5. AFLIBERCEPT [Suspect]
     Active Substance: AFLIBERCEPT
     Dosage: 300 MG, CYCLIC (FREQ:2 WK;300 MG, QOW)
     Route: 042
     Dates: start: 20210519, end: 20210519
  6. FLUOROURACIL. [Suspect]
     Active Substance: FLUOROURACIL
     Dosage: 756 MG, CYCLIC (FREQ:2 WK;756 MG, QOW)
     Route: 040
     Dates: start: 20210519, end: 20210519
  7. HIDROSALURETIL [Concomitant]
     Active Substance: HYDROCHLOROTHIAZIDE
     Indication: HYPERTENSION
     Dosage: 50 MG
     Route: 048
     Dates: start: 2012
  8. FLUOROURACIL. [Suspect]
     Active Substance: FLUOROURACIL
     Dosage: 756 MG, CYCLIC (FREQ:2 WK;756 MG, QOW)
     Route: 040
     Dates: start: 20210505, end: 20210505
  9. METFORMIN [Concomitant]
     Active Substance: METFORMIN HYDROCHLORIDE
     Dosage: 3400 MG
     Route: 048
     Dates: start: 2013
  10. IRINOTECAN HCL [Suspect]
     Active Substance: IRINOTECAN HYDROCHLORIDE
     Dosage: 28315 MG, CYCLIC (FREQ:2 WK;28315 MG, QOW)
     Route: 042
     Dates: start: 20210519, end: 20210519
  11. INSULINE [INSULIN PORCINE] [Concomitant]
     Active Substance: INSULIN PORK\INSULIN PURIFIED PORK
     Dosage: UNKNOWN
     Route: 042
     Dates: start: 2014

REACTIONS (2)
  - Mucosal inflammation [Recovered/Resolved]
  - Rectal haemorrhage [Unknown]

NARRATIVE: CASE EVENT DATE: 20210601
